FAERS Safety Report 18455884 (Version 2)
Quarter: 2020Q4

REPORT INFORMATION
  Report Type: Spontaneous
  Country: TW (occurrence: TW)
  Receive Date: 20201103
  Receipt Date: 20201106
  Transmission Date: 20210114
  Serious: Yes (Other)
  Sender: FDA-Public Use
  Company Number: TW-ROCHE-2703548

PATIENT
  Age: 74 Year
  Sex: Female

DRUGS (1)
  1. TECENTRIQ [Suspect]
     Active Substance: ATEZOLIZUMAB
     Indication: TRANSITIONAL CELL CARCINOMA
     Dosage: MOST RECENT DOSE ON 31/JUL/2019, 08/AUG/2019, 02/SEP/2019, 02/OCT/2019, 12/NOV/2019, 05/DEC/2019, 03
     Route: 065
     Dates: start: 20190710

REACTIONS (7)
  - Bacteraemia [Unknown]
  - Pancreatitis [Unknown]
  - Septic shock [Unknown]
  - Acute kidney injury [Unknown]
  - Shock [Unknown]
  - Abdominal infection [Unknown]
  - Pyelonephritis acute [Unknown]

NARRATIVE: CASE EVENT DATE: 20190731
